FAERS Safety Report 7957360-4 (Version None)
Quarter: 2011Q4

REPORT INFORMATION
  Report Type: 
  Country: None (occurrence: None)
  Receive Date: 20111205
  Receipt Date: 20111128
  Transmission Date: 20120403
  Serious: Yes (Hospitalization)
  Sender: FDA-Public Use
  Company Number: GXKR2011DE003465

PATIENT

DRUGS (15)
  1. LEVOTHYROXINE SODIUM [Concomitant]
     Dosage: 0.075 MG, UNK
     Route: 048
  2. EMSELEX [Concomitant]
     Dosage: 7.5 MG, UNK
     Route: 048
  3. PANTOPRAZOLE SODIUM [Concomitant]
     Dosage: 40 MG, UNK
     Route: 048
  4. LANTUS [Concomitant]
     Dosage: 24 IU, UNK
  5. ACETYLSALICYLIC ACID SRT [Concomitant]
     Dosage: 100 MG, UNK
     Route: 048
  6. SIMVASTATIN [Concomitant]
     Dosage: 20 MG, UNK
     Route: 048
  7. ALLOPURINOL [Concomitant]
     Dosage: 100 MG, UNK
     Route: 048
  8. VICTOZA [Concomitant]
     Dosage: 1.2 MG, UNK
     Route: 048
  9. MOVIPREP [Concomitant]
     Dosage: 2 BTL.
     Route: 048
  10. ENOXAPARIN SODIUM [Concomitant]
     Dosage: 0.4 ML, UNK
     Route: 058
  11. FORMOTEROL FUMARATE [Concomitant]
     Dosage: 2 STROKES
     Route: 055
  12. DIOVAN [Concomitant]
     Dosage: 80 MG, UNK
     Route: 048
  13. TAMSULOSIN HCL [Concomitant]
     Dosage: 0.4 MG, UNK
     Route: 048
  14. MIRTAZAPINE [Suspect]
     Dosage: 7.5 MG, UNK
     Route: 048
     Dates: start: 20110504, end: 20110505
  15. PLAVIX [Concomitant]
     Dosage: 75 MG, UNK
     Route: 048

REACTIONS (1)
  - ELECTROCARDIOGRAM QT PROLONGED [None]
